FAERS Safety Report 5875658-0 (Version None)
Quarter: 2008Q3

REPORT INFORMATION
  Report Type: 
  Country: None (occurrence: None)
  Receive Date: 20080909
  Receipt Date: 20080903
  Transmission Date: 20090109
  Serious: Yes (Other)
  Sender: FDA-Public Use
  Company Number: US-GILEAD-2008-0017776

PATIENT
  Sex: Female

DRUGS (6)
  1. LETAIRIS [Suspect]
     Indication: PULMONARY ARTERIAL HYPERTENSION
     Route: 048
     Dates: start: 20080714
  2. CELLCEPT [Concomitant]
     Route: 048
  3. REVATIO [Concomitant]
     Route: 048
  4. POTASSIUM CHLORIDE [Concomitant]
     Route: 048
  5. NEXIUM [Concomitant]
     Route: 048
  6. LORAZEPAM [Concomitant]
     Route: 048

REACTIONS (2)
  - OEDEMA PERIPHERAL [None]
  - PAIN [None]
